FAERS Safety Report 13227569 (Version 1)
Quarter: 2017Q1

REPORT INFORMATION
  Report Type: Spontaneous
  Country: NO (occurrence: NO)
  Receive Date: 20170213
  Receipt Date: 20170213
  Transmission Date: 20170428
  Serious: Yes (Death)
  Sender: FDA-Public Use
  Company Number: NO-PFIZER INC-1913442

PATIENT
  Age: 83 Year
  Sex: Female

DRUGS (3)
  1. VINCRISTINE SULFATE. [Suspect]
     Active Substance: VINCRISTINE SULFATE
     Indication: SMALL CELL LUNG CANCER
     Dosage: DOSAGE ACCORDING TO PROTOCOL
     Route: 041
     Dates: end: 20130730
  2. CYCLOPHOSPHAMIDE. [Suspect]
     Active Substance: CYCLOPHOSPHAMIDE
     Indication: SMALL CELL LUNG CANCER
     Dosage: DOSAGE ACCORDING TO PROTOCOL
     Route: 041
     Dates: end: 20130730
  3. DOXORUBICIN [Suspect]
     Active Substance: DOXORUBICIN
     Indication: SMALL CELL LUNG CANCER
     Dosage: DOSAGE ACCORDING TO PROTOCOL
     Route: 041
     Dates: end: 20130730

REACTIONS (4)
  - Febrile neutropenia [Fatal]
  - Renal failure [Fatal]
  - Incorrect dose administered [Fatal]
  - Medication error [Fatal]

NARRATIVE: CASE EVENT DATE: 20130730
